FAERS Safety Report 26195641 (Version 1)
Quarter: 2025Q4

REPORT INFORMATION
  Report Type: Spontaneous
  Country: US (occurrence: US)
  Receive Date: 20251224
  Receipt Date: 20251224
  Transmission Date: 20260117
  Serious: No
  Sender: DAIICHI
  Company Number: US-DAIICHI SANKYO, INC.-DS-2025-184938-USAA

PATIENT
  Sex: Female

DRUGS (1)
  1. BENICAR [Suspect]
     Active Substance: OLMESARTAN MEDOXOMIL
     Indication: Blood pressure measurement
     Dosage: 40 MG
     Route: 048

REACTIONS (1)
  - Drug ineffective [Unknown]
